FAERS Safety Report 8969351 (Version 1)
Quarter: 2012Q4

REPORT INFORMATION
  Report Type: 
  Country: US (occurrence: US)
  Receive Date: 20121218
  Receipt Date: 20121218
  Transmission Date: 20130627
  Serious: Yes (Other)
  Sender: FDA-Public Use
  Company Number: US-BRISTOL-MYERS SQUIBB COMPANY-16284234

PATIENT
  Age: 56 Year
  Sex: Male

DRUGS (4)
  1. ABILIFY TABS [Suspect]
     Indication: BIPOLAR II DISORDER
     Dosage: 7.5mg increased to 10mg 4/10
     Route: 048
     Dates: start: 20091104
  2. LAMICTAL [Concomitant]
  3. ALTACE [Concomitant]
  4. AMBIEN CR [Concomitant]
     Dosage: 6.25 units NOS

REACTIONS (1)
  - Blood triglycerides increased [Unknown]
